FAERS Safety Report 9580196 (Version 2)
Quarter: 2013Q4

REPORT INFORMATION
  Report Type: Spontaneous
  Country: US (occurrence: US)
  Receive Date: 20131002
  Receipt Date: 20131003
  Transmission Date: 20140711
  Serious: Yes (Hospitalization)
  Sender: FDA-Public Use
  Company Number: US-ABBVIE-13P-163-1150413-00

PATIENT
  Age: 64 Year
  Sex: Female

DRUGS (5)
  1. HUMIRA [Suspect]
     Indication: COLITIS ULCERATIVE
     Dosage: 4 INJECTIONS
     Route: 058
     Dates: start: 20130914, end: 20130914
  2. TORSEMIDE [Concomitant]
     Indication: DIURETIC THERAPY
  3. PREDNISONE [Concomitant]
     Indication: CROHN^S DISEASE
  4. MERCAPTOPURINE [Concomitant]
     Indication: COLITIS ULCERATIVE
  5. 6-MP [Concomitant]
     Indication: CROHN^S DISEASE

REACTIONS (6)
  - Blood pressure decreased [Recovered/Resolved]
  - Pyrexia [Recovered/Resolved]
  - Hypersensitivity [Recovered/Resolved]
  - Incoherent [Recovered/Resolved]
  - Rash [Unknown]
  - Rash macular [Unknown]
